FAERS Safety Report 9747433 (Version 1)
Quarter: 2013Q4

REPORT INFORMATION
  Report Type: Spontaneous
  Country: US (occurrence: US)
  Receive Date: 20131212
  Receipt Date: 20131212
  Transmission Date: 20140711
  Serious: No
  Sender: FDA-Public Use
  Company Number: US-BIOGENIDEC-2013BI117607

PATIENT
  Sex: Female

DRUGS (1)
  1. TYSABRI [Suspect]
     Indication: MULTIPLE SCLEROSIS
     Route: 042
     Dates: start: 20130412

REACTIONS (6)
  - Cough [Unknown]
  - Malaise [Unknown]
  - Nausea [Unknown]
  - Urinary tract infection viral [Recovered/Resolved]
  - Influenza [Unknown]
  - Vomiting [Unknown]
